FAERS Safety Report 5432541-2 (Version None)
Quarter: 2007Q3

REPORT INFORMATION
  Report Type: 
  Country: None (occurrence: None)
  Receive Date: 20070831
  Receipt Date: 20070829
  Transmission Date: 20080115
  Serious: Yes (Other)
  Sender: FDA-Public Use
  Company Number: PHMT2007CA01830

PATIENT
  Age: 2 Month
  Sex: Female
  Weight: 2.154 kg

DRUGS (5)
  1. INTERFERON [Concomitant]
     Indication: WHITE BLOOD CELL COUNT
     Dosage: UNK, UNK
     Route: 064
     Dates: start: 20070201, end: 20070601
  2. HYDROXYUREA [Concomitant]
     Dosage: UNK
     Route: 064
  3. CEFTRIAXONE [Concomitant]
     Route: 064
  4. FRAGMIN [Concomitant]
     Dosage: UNK
     Route: 064
  5. GLEEVEC [Suspect]
     Indication: CHRONIC MYELOID LEUKAEMIA
     Dosage: MATERNAL DOSE: 400 MG DAILY
     Route: 064
     Dates: start: 20060901, end: 20070101

REACTIONS (2)
  - DRUG EXPOSURE DURING PREGNANCY [None]
  - PREMATURE BABY [None]
